FAERS Safety Report 9462173 (Version 2)
Quarter: 2021Q2

REPORT INFORMATION
  Report Type: Spontaneous
  Country: US (occurrence: US)
  Receive Date: 20130816
  Receipt Date: 20210427
  Transmission Date: 20210717
  Serious: Yes (Death, Hospitalization, Other)
  Sender: FDA-Public Use
  Company Number: US-SANOFI-AVENTIS-2013SA081528

PATIENT
  Age: 53 Year
  Sex: Male

DRUGS (5)
  1. ASPIRIN [ACETYLSALICYLIC ACID] [Concomitant]
     Active Substance: ASPIRIN
     Dosage: 325 MG, QD
     Dates: start: 2000
  2. RIFAMPICIN [Suspect]
     Active Substance: RIFAMPIN
     Indication: LATENT TUBERCULOSIS
     Dosage: 600 MG (6.7 MG/KG)
     Dates: start: 2000, end: 200009
  3. PYRAZINAMIDE. [Suspect]
     Active Substance: PYRAZINAMIDE
     Indication: LATENT TUBERCULOSIS
     Dosage: 1750 MG (19 MG/KG)
     Route: 065
     Dates: start: 2000, end: 200009
  4. NIFEDIPINE. [Concomitant]
     Active Substance: NIFEDIPINE
     Dosage: 90 MG
     Dates: start: 2000
  5. HYDROCHLOROTHIAZIDE. [Concomitant]
     Active Substance: HYDROCHLOROTHIAZIDE
     Dosage: 50 MG
     Dates: start: 2000

REACTIONS (7)
  - Fatigue [Fatal]
  - Hepatitis [Fatal]
  - Decreased appetite [Fatal]
  - Mental status changes [Fatal]
  - Jaundice [Fatal]
  - Hepatic failure [Fatal]
  - Hepatic necrosis [Fatal]

NARRATIVE: CASE EVENT DATE: 2000
